FAERS Safety Report 9748941 (Version 2)
Quarter: 2013Q4

REPORT INFORMATION
  Report Type: Spontaneous
  Country: US (occurrence: US)
  Receive Date: 20131212
  Receipt Date: 20131212
  Transmission Date: 20140711
  Serious: No
  Sender: FDA-Public Use
  Company Number: US-INCYTE CORPORATION-2013IN001899

PATIENT
  Sex: Female

DRUGS (10)
  1. JAKAFI [Suspect]
     Indication: MYELOFIBROSIS
     Dosage: 10 MG, BID
     Route: 048
     Dates: start: 20130111, end: 2013
  2. JAKAFI [Suspect]
     Indication: SPLENOMEGALY
  3. ALENDRONATE SODIUM [Concomitant]
     Dosage: 70 MG, UNK
  4. CENTRUM SILVER [Concomitant]
  5. FAMOTIDINE [Concomitant]
     Dosage: 20 MG, UNK
  6. BAYER CHILDRENS ASPIRIN [Concomitant]
  7. CALCIUM + VITAMIN D [Concomitant]
  8. METAMUCIL POWDER [Concomitant]
  9. VITAMIN D [Concomitant]
     Dosage: 1000 UT, UNK
  10. VITAMIN B6 [Concomitant]
     Dosage: 80 MG, UNK

REACTIONS (2)
  - Cardiac disorder [Unknown]
  - Treatment failure [Unknown]
